FAERS Safety Report 19856918 (Version 1)
Quarter: 2021Q3

REPORT INFORMATION
  Report Type: Spontaneous
  Country: DE (occurrence: DE)
  Receive Date: 20210920
  Receipt Date: 20210920
  Transmission Date: 20211014
  Serious: Yes (Hospitalization)
  Sender: FDA-Public Use
  Company Number: NVSC2021DE207971

PATIENT
  Age: 28 Year
  Sex: Female

DRUGS (1)
  1. LAMOTRIGIN [Suspect]
     Active Substance: LAMOTRIGINE
     Indication: EPILEPSY
     Dosage: 25 MG, QD (0?0?1?0)
     Route: 048
     Dates: start: 20210805, end: 20210814

REACTIONS (3)
  - Headache [Unknown]
  - Rash [Not Recovered/Not Resolved]
  - Body temperature increased [Recovered/Resolved]

NARRATIVE: CASE EVENT DATE: 202108
